FAERS Safety Report 5014380-X (Version None)
Quarter: 2006Q2

REPORT INFORMATION
  Report Type: 
  Country: None (occurrence: None)
  Receive Date: 20060525
  Receipt Date: 20060412
  Transmission Date: 20061013
  Serious: Yes (Hospitalization)
  Sender: FDA-Public Use
  Company Number: 223442

PATIENT
  Age: 41 Year

DRUGS (18)
  1. RITUXAN  (RITUXIMAB) CONIC FOR SOLUTION FOR INFUSION [Suspect]
     Indication: TRANSPLANT REJECTION
     Dosage: 500 MG, X2, INTRAVENOUS
     Route: 042
     Dates: start: 20041201, end: 20041202
  2. CELLCEPT [Suspect]
     Indication: TRANSPLANT REJECTION
     Dosage: SEE IMAGE
     Route: 048
     Dates: start: 20041123, end: 20041126
  3. CELLCEPT [Suspect]
     Indication: TRANSPLANT REJECTION
     Dosage: SEE IMAGE
     Route: 048
     Dates: start: 20041127, end: 20041130
  4. CELLCEPT [Suspect]
     Indication: TRANSPLANT REJECTION
     Dosage: SEE IMAGE
     Route: 048
     Dates: start: 20041201, end: 20041202
  5. CELLCEPT [Suspect]
     Indication: TRANSPLANT REJECTION
     Dosage: SEE IMAGE
     Route: 048
     Dates: start: 20041207, end: 20041211
  6. CELLCEPT [Suspect]
     Indication: TRANSPLANT REJECTION
     Dosage: SEE IMAGE
     Route: 048
     Dates: start: 20041212, end: 20041216
  7. CELLCEPT [Suspect]
     Indication: TRANSPLANT REJECTION
     Dosage: SEE IMAGE
     Route: 048
     Dates: start: 20041220, end: 20050301
  8. CELLCEPT [Suspect]
     Indication: TRANSPLANT REJECTION
     Dosage: SEE IMAGE
     Route: 048
     Dates: start: 20041219, end: 20050315
  9. CELLCEPT [Suspect]
     Indication: TRANSPLANT REJECTION
     Dosage: SEE IMAGE
     Route: 048
     Dates: start: 20041206
  10. CELLCEPT [Suspect]
     Indication: TRANSPLANT REJECTION
     Dosage: SEE IMAGE
     Route: 048
     Dates: start: 20041217
  11. CELLCEPT [Suspect]
     Indication: TRANSPLANT REJECTION
     Dosage: SEE IMAGE
     Route: 048
     Dates: start: 20041218
  12. PROGRAF [Suspect]
     Indication: TRANSPLANT REJECTION
     Dosage: 6 MG, ORAL
     Route: 048
     Dates: start: 20041201, end: 20050301
  13. PREDNISOLONE [Suspect]
     Indication: TRANSPLANT REJECTION
     Dosage: 20 MG, ORAL
     Route: 048
     Dates: start: 20041126, end: 20041219
  14. CYCLOPHOSPHAMIDE [Suspect]
     Indication: TRANSPLANT REJECTION
     Dosage: 325 MG, INTRAVENOUS
     Route: 042
     Dates: start: 20041201, end: 20041204
  15. LYMPHOGLOBULINE (ANTILYMPHOCYTE IMMUNOGLOBULIN) [Suspect]
     Indication: TRANSPLANT REJECTION
     Dosage: 400 MG, INTRAVENOUS
     Route: 042
     Dates: start: 20041121, end: 20041129
  16. MANNITOL [Concomitant]
  17. FRESH FROZEN PLASMA [Concomitant]
  18. HYDROCORTISONE SODIUM SUCCINATE [Concomitant]

REACTIONS (8)
  - CANDIDA PNEUMONIA [None]
  - CROUP INFECTIOUS [None]
  - FOREIGN BODY TRAUMA [None]
  - INJURY ASPHYXIATION [None]
  - PERITONEAL DIALYSIS [None]
  - PNEUMONIA ASPIRATION [None]
  - VIRAL INFECTION [None]
  - WHITE BLOOD CELL COUNT DECREASED [None]
